FAERS Safety Report 9315539 (Version 2)
Quarter: 2013Q2

REPORT INFORMATION
  Report Type: Report from Study
  Country: BR (occurrence: BR)
  Receive Date: 20130529
  Receipt Date: 20130626
  Transmission Date: 20140414
  Serious: Yes (Hospitalization)
  Sender: FDA-Public Use
  Company Number: BR-ROCHE-1229862

PATIENT
  Sex: Female
  Weight: 61.06 kg

DRUGS (8)
  1. XOLAIR [Suspect]
     Indication: ASTHMA
     Dosage: 1 AMPOULE PER MONTH
     Route: 065
     Dates: start: 201211
  2. ALENIA (BRAZIL) [Concomitant]
     Dosage: 12/400 UG
     Route: 065
  3. BUDESONIDE [Concomitant]
     Route: 065
  4. BECLOMETHASONE DIPROPIONATE [Concomitant]
  5. OMEPRAZOLE [Concomitant]
     Route: 065
  6. AEROLIN [Concomitant]
  7. HYDROCHLOROTHIAZIDE [Concomitant]
  8. LOSARTAN [Concomitant]

REACTIONS (2)
  - Headache [Recovered/Resolved]
  - Vomiting [Recovered/Resolved]
